FAERS Safety Report 9213661 (Version 1)
Quarter: 2013Q2

REPORT INFORMATION
  Report Type: Spontaneous
  Country: US (occurrence: None)
  Receive Date: 20130404
  Receipt Date: 20130404
  Transmission Date: 20140414
  Serious: Yes (Disabling)
  Sender: FDA-Public Use
  Company Number: None

PATIENT
  Age: 4 Year
  Sex: Female
  Weight: 20 kg

DRUGS (1)
  1. ETOPOSIDE [Suspect]
     Indication: NEUROBLASTOMA
     Dosage: 160MG  DAILY  IV
     Route: 042
     Dates: start: 20120401, end: 20120404

REACTIONS (5)
  - Abdominal pain [None]
  - Pruritus [None]
  - Tearfulness [None]
  - Flushing [None]
  - Infusion related reaction [None]
